FAERS Safety Report 6261770-3 (Version None)
Quarter: 2009Q3

REPORT INFORMATION
  Report Type: 
  Country: None (occurrence: None)
  Receive Date: 20090707
  Receipt Date: 20090707
  Transmission Date: 20100115
  Serious: Yes (Death)
  Sender: FDA-Public Use
  Company Number: None

PATIENT
  Age: 34 Year
  Sex: Male
  Weight: 96.6162 kg

DRUGS (2)
  1. AMITRIPTYLINE HCL [Suspect]
     Indication: BIPOLAR DISORDER
     Dosage: 50 MG 3 X DAILEY PO
     Route: 048
     Dates: start: 20021204, end: 20061017
  2. AMITRIPTYLINE HCL [Suspect]
     Indication: PANIC DISORDER
     Dosage: 50 MG 3 X DAILEY PO
     Route: 048
     Dates: start: 20021204, end: 20061017

REACTIONS (2)
  - AGGRESSION [None]
  - OVERDOSE [None]
